FAERS Safety Report 4919091-4 (Version None)
Quarter: 2006Q1

REPORT INFORMATION
  Report Type: 
  Country: None (occurrence: None)
  Receive Date: 20060222
  Receipt Date: 20060210
  Transmission Date: 20060701
  Serious: Yes (Death, Hospitalization)
  Sender: FDA-Public Use
  Company Number: FR-BRISTOL-MYERS SQUIBB COMPANY-13280391

PATIENT
  Age: 64 Year
  Sex: Male

DRUGS (3)
  1. ZERIT [Suspect]
     Route: 048
     Dates: start: 19961001
  2. LAMIVUDINE [Suspect]
     Dates: start: 19961001
  3. INDINIVIR SULFATE [Suspect]
     Dates: start: 19961001

REACTIONS (7)
  - BLOOD ALBUMIN DECREASED [None]
  - BLOOD BILIRUBIN INCREASED [None]
  - HYPOVOLAEMIC SHOCK [None]
  - PORTAL HYPERTENSION [None]
  - PORTAL VEIN THROMBOSIS [None]
  - PROTHROMBIN TIME PROLONGED [None]
  - VARICES OESOPHAGEAL [None]
